FAERS Safety Report 9292223 (Version 1)
Quarter: 2013Q2

REPORT INFORMATION
  Report Type: Spontaneous
  Country: US (occurrence: US)
  Receive Date: 20130516
  Receipt Date: 20130516
  Transmission Date: 20140414
  Serious: No
  Sender: FDA-Public Use
  Company Number: US-009507513-1305USA002553

PATIENT
  Age: 20 Year
  Sex: Female
  Weight: 79.82 kg

DRUGS (2)
  1. NEXPLANON [Suspect]
     Indication: CONTRACEPTION
     Dosage: UNK
     Route: 059
     Dates: start: 20130308
  2. VITAMINS (UNSPECIFIED) [Concomitant]

REACTIONS (2)
  - Menorrhagia [Not Recovered/Not Resolved]
  - Menstruation delayed [Recovered/Resolved]
